FAERS Safety Report 11395122 (Version 1)
Quarter: 2015Q3

REPORT INFORMATION
  Report Type: Spontaneous
  Country: IT (occurrence: IT)
  Receive Date: 20150819
  Receipt Date: 20150819
  Transmission Date: 20151125
  Serious: Yes (Hospitalization)
  Sender: FDA-Public Use
  Company Number: IT-PFIZER INC-2015273438

PATIENT
  Age: 40 Year
  Sex: Male

DRUGS (2)
  1. TAVOR [Suspect]
     Active Substance: LORAZEPAM
     Indication: ANXIETY
     Dosage: 2 DF, TOTAL
     Route: 048
     Dates: start: 20140101
  2. XANAX [Suspect]
     Active Substance: ALPRAZOLAM
     Indication: ANXIETY
     Dosage: 4 DF, TOTAL
     Route: 048
     Dates: start: 20140101

REACTIONS (3)
  - Overdose [Recovering/Resolving]
  - Drug abuse [Recovering/Resolving]
  - Hallucination [Recovering/Resolving]

NARRATIVE: CASE EVENT DATE: 20150220
